FAERS Safety Report 5155752-2 (Version None)
Quarter: 2006Q4

REPORT INFORMATION
  Report Type: 
  Country: None (occurrence: None)
  Receive Date: 20061113
  Receipt Date: 20061103
  Transmission Date: 20070319
  Serious: Yes (Hospitalization, Other)
  Sender: FDA-Public Use
  Company Number: 163-C5013-05090189

PATIENT
  Age: 56 Year
  Sex: Female
  Weight: 86.7 kg

DRUGS (2)
  1. CC-5013 (CAPSULES) [Suspect]
     Indication: MULTIPLE MYELOMA
     Dosage: 25 MG, DAILY ON DAYS 1-21, Q28D, ORAL
     Route: 048
     Dates: start: 20050526
  2. DEXAMETHASONE TAB [Suspect]
     Indication: MULTIPLE MYELOMA
     Dosage: 40 MG, DAILY ON DAYS 1-4, 9-12, 17-20, Q28D, ORAL
     Route: 048
     Dates: start: 20050526

REACTIONS (6)
  - BONE SCAN ABNORMAL [None]
  - DEPRESSION [None]
  - PAIN [None]
  - ROAD TRAFFIC ACCIDENT [None]
  - SPINAL FRACTURE [None]
  - VISION BLURRED [None]
